FAERS Safety Report 6664841-2 (Version None)
Quarter: 2010Q2

REPORT INFORMATION
  Report Type: 
  Country: None (occurrence: None)
  Receive Date: 20100402
  Receipt Date: 20100323
  Transmission Date: 20101027
  Serious: Yes (Hospitalization, Other)
  Sender: FDA-Public Use
  Company Number: US-BIOGENIDEC-2010BI008388

PATIENT
  Age: 55 Year
  Sex: Female

DRUGS (1)
  1. AVONEX [Suspect]
     Indication: MULTIPLE SCLEROSIS
     Route: 030
     Dates: start: 19970214

REACTIONS (5)
  - DEVICE RELATED INFECTION [None]
  - H1N1 INFLUENZA [None]
  - LARYNGEAL INJURY [None]
  - MULTIPLE SCLEROSIS RELAPSE [None]
  - PYREXIA [None]
